FAERS Safety Report 5036014-0 (Version None)
Quarter: 2006Q2

REPORT INFORMATION
  Report Type: 
  Country: None (occurrence: None)
  Receive Date: 20060526
  Receipt Date: 20050429
  Transmission Date: 20061013
  Serious: Yes (Other)
  Sender: FDA-Public Use
  Company Number: 002#4#2005-00150

PATIENT
  Age: 73 Year
  Sex: Male
  Weight: 78.0187 kg

DRUGS (4)
  1. UNIVASC [Suspect]
     Indication: BLOOD PRESSURE
     Dosage: ORAL
     Route: 048
     Dates: start: 20041201
  2. METHYLCELLULOSE [Suspect]
     Indication: CONSTIPATION
     Dosage: ORAL
     Route: 048
     Dates: start: 19990101
  3. CLOPIDOGREL BISULFATE [Concomitant]
  4. GALANTAMINE HYDROBROMIDE [Concomitant]

REACTIONS (1)
  - LOSS OF CONSCIOUSNESS [None]
